FAERS Safety Report 11972725 (Version 1)
Quarter: 2016Q1

REPORT INFORMATION
  Report Type: Report from Study
  Country: US (occurrence: US)
  Receive Date: 20160128
  Receipt Date: 20160128
  Transmission Date: 20160526
  Serious: Yes (Disabling)
  Sender: FDA-Public Use
  Company Number: US-ABBVIE-16K-163-1543951-00

PATIENT
  Age: 48 Year
  Sex: Female

DRUGS (1)
  1. HUMIRA [Suspect]
     Active Substance: ADALIMUMAB
     Indication: CROHN^S DISEASE
     Route: 058
     Dates: start: 20150116, end: 20151112

REACTIONS (7)
  - Tinnitus [Unknown]
  - Paralysis [Unknown]
  - Gingival bleeding [Unknown]
  - Haematochezia [Unknown]
  - Onychomadesis [Unknown]
  - Tooth loss [Unknown]
  - Psoriasis [Unknown]

NARRATIVE: CASE EVENT DATE: 201511
